FAERS Safety Report 13502733 (Version 1)
Quarter: 2017Q2

REPORT INFORMATION
  Report Type: Spontaneous
  Country: US (occurrence: US)
  Receive Date: 20170501
  Receipt Date: 20170501
  Transmission Date: 20170830
  Serious: Yes (Life-Threatening, Hospitalization)
  Sender: FDA-Public Use
  Company Number: None

PATIENT
  Age: 55 Year
  Sex: Male
  Weight: 99 kg

DRUGS (3)
  1. HEPARIN [Suspect]
     Active Substance: HEPARIN SODIUM
     Indication: PULMONARY EMBOLISM
     Dosage: DOSE - HEPARIN - 10,000 UNITS/10ML VIAL
     Dates: start: 20170330, end: 20170425
  2. HEPARIN [Suspect]
     Active Substance: HEPARIN SODIUM
     Indication: ACUTE MYOCARDIAL INFARCTION
     Dosage: DOSE - HEPARIN - 10,000 UNITS/10ML VIAL
     Dates: start: 20170330, end: 20170425
  3. HEPARIN [Suspect]
     Active Substance: HEPARIN SODIUM
     Indication: CORONARY ARTERY BYPASS
     Dosage: DOSE - HEPARIN - 10,000 UNITS/10ML VIAL
     Dates: start: 20170330, end: 20170425

REACTIONS (2)
  - Thrombocytopenia [None]
  - Pulmonary artery thrombosis [None]

NARRATIVE: CASE EVENT DATE: 20170417
